FAERS Safety Report 4290526-6 (Version None)
Quarter: 2004Q1

REPORT INFORMATION
  Report Type: 
  Country: None (occurrence: None)
  Receive Date: 20040209
  Receipt Date: 20040124
  Transmission Date: 20041129
  Serious: Yes (Other)
  Sender: FDA-Public Use
  Company Number: 187542

PATIENT
  Sex: Female

DRUGS (17)
  1. AVONEX [Suspect]
     Indication: MULTIPLE SCLEROSIS
  2. TEGRETOL [Concomitant]
  3. IMITREX [Concomitant]
  4. AMBIEN [Concomitant]
  5. ELTOR 120 [Concomitant]
  6. HYZAAR [Concomitant]
  7. TRICOR [Concomitant]
  8. ZOCOR [Concomitant]
  9. REMERON [Concomitant]
  10. COMBIVENT [Concomitant]
  11. ADVAIR DISKUS 100/50 [Concomitant]
  12. ACIPHEX [Concomitant]
  13. KEPPRA [Concomitant]
  14. EFFEXOR [Concomitant]
  15. MOBIC [Concomitant]
  16. ACTOS/USA/ [Concomitant]
  17. XANAX [Concomitant]

REACTIONS (2)
  - HEPATIC ENZYME INCREASED [None]
  - NON-HODGKIN'S LYMPHOMA [None]
